FAERS Safety Report 10595546 (Version 14)
Quarter: 2017Q2

REPORT INFORMATION
  Report Type: Report from Study
  Country: CA (occurrence: CA)
  Receive Date: 20141120
  Receipt Date: 20170524
  Transmission Date: 20170829
  Serious: Yes (Death, Hospitalization, Other)
  Sender: FDA-Public Use
  Company Number: PHHY2014CA038060

PATIENT
  Age: 70 Year
  Sex: Female

DRUGS (4)
  1. SANDOSTATIN [Suspect]
     Active Substance: OCTREOTIDE ACETATE
     Indication: PANCREATIC NEUROENDOCRINE TUMOUR METASTATIC
     Dosage: 100 UG, TID
     Route: 058
     Dates: start: 20140307, end: 201404
  2. SANDOSTATIN [Suspect]
     Active Substance: OCTREOTIDE ACETATE
     Indication: METASTASES TO LIVER
  3. SANDOSTATIN LAR DEPOT [Suspect]
     Active Substance: OCTREOTIDE ACETATE
     Indication: PANCREATIC NEUROENDOCRINE TUMOUR METASTATIC
     Dosage: 20 MG, QMO (EVERY 4 WEEKS)
     Route: 030
     Dates: start: 20140324, end: 20141007
  4. SANDOSTATIN LAR DEPOT [Suspect]
     Active Substance: OCTREOTIDE ACETATE
     Indication: METASTASES TO LIVER
     Dosage: 30 MG, QMO (EVERY 4 WEEKS)
     Route: 030
     Dates: start: 20141104

REACTIONS (20)
  - Death [Fatal]
  - Eye pain [Recovered/Resolved]
  - Balance disorder [Unknown]
  - Rash generalised [Recovering/Resolving]
  - Malaise [Unknown]
  - Confusional state [Unknown]
  - Blood urine present [Unknown]
  - Headache [Not Recovered/Not Resolved]
  - Trigeminal neuralgia [Unknown]
  - Blood pressure increased [Unknown]
  - Blood pressure diastolic decreased [Unknown]
  - Eye pain [Unknown]
  - Blood calcium increased [Unknown]
  - Heart rate decreased [Unknown]
  - Rash erythematous [Recovering/Resolving]
  - Body temperature decreased [Unknown]
  - Cardiac failure congestive [Unknown]
  - Abnormal sensation in eye [Not Recovered/Not Resolved]
  - Blood pressure systolic increased [Unknown]
  - Rash pruritic [Recovering/Resolving]

NARRATIVE: CASE EVENT DATE: 20140324
